FAERS Safety Report 4696474-1 (Version None)
Quarter: 2005Q2

REPORT INFORMATION
  Report Type: 
  Country: None (occurrence: None)
  Receive Date: 20050621
  Receipt Date: 20041112
  Transmission Date: 20051028
  Serious: Yes (Other)
  Sender: FDA-Public Use
  Company Number: JP-MERCK-0411USA02684

PATIENT
  Age: 80 Year
  Sex: Female

DRUGS (8)
  1. FOSAMAX [Suspect]
     Route: 048
  2. NU-LOTAN [Concomitant]
     Route: 048
  3. MEVALOTIN [Concomitant]
     Route: 048
  4. ALFACALCIDOL [Concomitant]
     Route: 048
  5. PROCYLIN [Concomitant]
     Route: 048
  6. MUCOSTA [Concomitant]
     Route: 048
  7. [THERAPY UNSPECIFIED] [Concomitant]
     Route: 048
  8. FERROMIA [Concomitant]
     Route: 048
     Dates: start: 20041014

REACTIONS (1)
  - HAEMATOMA [None]
